FAERS Safety Report 6826385-4 (Version None)
Quarter: 2010Q3

REPORT INFORMATION
  Report Type: 
  Country: None (occurrence: None)
  Receive Date: 20100709
  Receipt Date: 20100702
  Transmission Date: 20110219
  Serious: Yes (Death, Hospitalization)
  Sender: FDA-Public Use
  Company Number: CL-SANOFI-AVENTIS-200922183GDDC

PATIENT
  Age: 69 Year
  Sex: Male
  Weight: 78.9 kg

DRUGS (22)
  1. AFLIBERCEPT [Suspect]
     Indication: PROSTATE CANCER METASTATIC
     Route: 042
     Dates: start: 20090805, end: 20090805
  2. AFLIBERCEPT [Suspect]
     Route: 042
     Dates: start: 20091028, end: 20091028
  3. DOCETAXEL [Suspect]
     Indication: PROSTATE CANCER METASTATIC
     Route: 042
     Dates: start: 20090805, end: 20090805
  4. DOCETAXEL [Suspect]
     Route: 042
     Dates: start: 20091028, end: 20091028
  5. PREDNISONE [Suspect]
     Indication: PROSTATE CANCER METASTATIC
     Route: 048
     Dates: start: 20090805, end: 20091028
  6. ZOLADEX [Concomitant]
     Indication: HORMONE REPLACEMENT THERAPY
     Dates: start: 20080912
  7. ANTITHROMBOTIC AGENTS [Concomitant]
     Dates: start: 20080913
  8. METFORMIN HCL [Concomitant]
     Dates: start: 19990101
  9. GLIBENCLAMIDE [Concomitant]
     Dates: start: 19990101
  10. LEVOTHYROXINE SODIUM [Concomitant]
     Dates: start: 20080801
  11. ATORVASTATIN [Concomitant]
     Dates: start: 20090825
  12. ONDANSETRON [Concomitant]
     Dosage: FREQUENCY: CYCLICALLY
     Dates: start: 20090805, end: 20091007
  13. RANITIDINE [Concomitant]
     Dosage: FREQUENCY: CYCLICALLY
     Dates: start: 20090805, end: 20091007
  14. CHLORPHENAMINE [Concomitant]
     Dosage: FREQUENCY: CYCLICALLY
     Dates: start: 20090805, end: 20091007
  15. DEXAMETHASONE [Concomitant]
     Dosage: FREQUENCY: CYCLICALLY
     Dates: start: 20090805, end: 20091007
  16. SODIUM BICARBONATE [Concomitant]
     Dates: start: 20090915
  17. FUROSEMIDE [Concomitant]
  18. ESPIRONOLACTONA [Concomitant]
  19. DIGOXIN [Concomitant]
  20. CARVEDILOL [Concomitant]
  21. CAPTOPRIL [Concomitant]
  22. GELCLAIR [Concomitant]
     Route: 065
     Dates: start: 20091006

REACTIONS (2)
  - PNEUMONIA [None]
  - RESTRICTIVE CARDIOMYOPATHY [None]
